FAERS Safety Report 15681831 (Version 1)
Quarter: 2018Q4

REPORT INFORMATION
  Report Type: Spontaneous
  Country: US (occurrence: US)
  Receive Date: 20181120
  Receipt Date: 20181120
  Transmission Date: 20190205
  Serious: No
  Sender: FDA-Public Use
  Company Number: None

PATIENT

DRUGS (3)
  1. BOTOX [Suspect]
     Active Substance: ONABOTULINUMTOXINA
     Indication: QUADRIPLEGIA
  2. BOTOX [Suspect]
     Active Substance: ONABOTULINUMTOXINA
     Indication: BRAIN INJURY
     Dates: start: 20181119
  3. BOTOX [Suspect]
     Active Substance: ONABOTULINUMTOXINA
     Indication: SALIVA ALTERED

REACTIONS (1)
  - Intentional product use issue [None]

NARRATIVE: CASE EVENT DATE: 20181119
